FAERS Safety Report 5062467-8 (Version None)
Quarter: 2006Q3

REPORT INFORMATION
  Report Type: 
  Country: None (occurrence: None)
  Receive Date: 20060721
  Receipt Date: 20060710
  Transmission Date: 20061208
  Serious: Yes (Other)
  Sender: FDA-Public Use
  Company Number: 8017889

PATIENT
  Age: 20 Year
  Sex: Male

DRUGS (1)
  1. KEPPRA [Suspect]
     Dosage: 1800 MG  / D
     Dates: start: 20050401

REACTIONS (1)
  - LEUKOPENIA [None]
